FAERS Safety Report 25801458 (Version 1)
Quarter: 2025Q3

REPORT INFORMATION
  Report Type: Report from Study
  Country: CA (occurrence: CA)
  Receive Date: 20250915
  Receipt Date: 20250915
  Transmission Date: 20251020
  Serious: Yes (Hospitalization, Other)
  Sender: TAKEDA
  Company Number: CA-TAKEDA-2025TUS069708

PATIENT
  Sex: Female

DRUGS (6)
  1. VEDOLIZUMAB [Suspect]
     Active Substance: VEDOLIZUMAB
     Indication: Crohn^s disease
  2. VITAMIN D [Concomitant]
     Active Substance: VITAMIN D NOS
  3. SYMBICORT [Concomitant]
     Active Substance: BUDESONIDE\FORMOTEROL FUMARATE DIHYDRATE
  4. PREDNISONE [Concomitant]
     Active Substance: PREDNISONE
  5. LORAZEPAM [Concomitant]
     Active Substance: LORAZEPAM
  6. GRAVOL [Concomitant]
     Active Substance: DIMENHYDRINATE

REACTIONS (4)
  - Ovarian cyst [Recovering/Resolving]
  - Hepatitis [Recovering/Resolving]
  - Faeces discoloured [Recovering/Resolving]
  - Abdominal pain lower [Recovering/Resolving]
